FAERS Safety Report 7351044-1 (Version None)
Quarter: 2011Q1

REPORT INFORMATION
  Report Type: 
  Country: None (occurrence: None)
  Receive Date: 20110314
  Receipt Date: 20110228
  Transmission Date: 20110831
  Serious: Yes (Other)
  Sender: FDA-Public Use
  Company Number: BR-GENENTECH-314724

PATIENT
  Sex: Female
  Weight: 43 kg

DRUGS (11)
  1. MABTHERA [Suspect]
     Indication: LYMPHOMA
     Dosage: UNK
     Route: 065
     Dates: start: 20110209, end: 20110209
  2. PREDNISONE [Concomitant]
     Indication: LYMPHOMA
     Dosage: UNK
     Dates: start: 20110209, end: 20110209
  3. PREDNISONE [Concomitant]
     Dosage: UNK
     Dates: start: 20110222, end: 20110222
  4. CYCLOPHOSPHAMIDE [Concomitant]
     Dosage: UNK
     Dates: start: 20110222, end: 20110222
  5. DOXORUBICIN [Concomitant]
     Indication: LYMPHOMA
     Dosage: UNK
     Dates: start: 20110209, end: 20110209
  6. VINCRISTINE [Concomitant]
     Dosage: UNK
     Dates: start: 20110222, end: 20110222
  7. DOXORUBICIN [Concomitant]
     Dosage: UNK
     Dates: start: 20110222, end: 20110222
  8. VINCRISTINE [Concomitant]
     Indication: LYMPHOMA
     Dosage: UNK
     Dates: start: 20110209, end: 20110209
  9. AMPLICTIL [Concomitant]
     Indication: PRODUCT USED FOR UNKNOWN INDICATION
     Dosage: 25 MG, QHS
  10. MABTHERA [Suspect]
     Dosage: UNK
     Route: 065
     Dates: start: 20110222, end: 20110222
  11. CYCLOPHOSPHAMIDE [Concomitant]
     Indication: LYMPHOMA
     Dosage: UNK
     Dates: start: 20110209, end: 20110209

REACTIONS (2)
  - INFUSION RELATED REACTION [None]
  - OXYGEN SATURATION DECREASED [None]
